FAERS Safety Report 17933074 (Version 1)
Quarter: 2020Q2

REPORT INFORMATION
  Report Type: Spontaneous
  Country: CN (occurrence: CN)
  Receive Date: 20200623
  Receipt Date: 20200623
  Transmission Date: 20200714
  Serious: Yes (Life-Threatening, Other)
  Sender: FDA-Public Use
  Company Number: CN-PFIZER INC-2020239860

PATIENT
  Sex: Female
  Weight: 51 kg

DRUGS (6)
  1. CYTARABINE. [Suspect]
     Active Substance: CYTARABINE
     Indication: NON-HODGKIN^S LYMPHOMA
     Dosage: 1 G, 2X/DAY
     Route: 041
     Dates: start: 20200530, end: 20200602
  2. GLUCOSE [Concomitant]
     Active Substance: DEXTROSE
     Dosage: 500 ML, 1X/DAY
     Route: 041
     Dates: start: 20200529, end: 20200529
  3. GLUCOSE [Concomitant]
     Active Substance: DEXTROSE
     Indication: VEHICLE SOLUTION USE
     Dosage: 250 ML, 1X/DAY
     Route: 041
     Dates: start: 20200529, end: 20200529
  4. RITUXIMAB. [Suspect]
     Active Substance: RITUXIMAB
     Indication: NON-HODGKIN^S LYMPHOMA
     Dosage: 100 MG, 1X/DAY
     Route: 041
     Dates: start: 20200529, end: 20200529
  5. GLUCOSE [Concomitant]
     Active Substance: DEXTROSE
     Dosage: 500 ML, 2X/DAY
     Route: 041
     Dates: start: 20200530, end: 20200602
  6. RITUXIMAB. [Suspect]
     Active Substance: RITUXIMAB
     Dosage: 480 MG, 1X/DAY
     Route: 041
     Dates: start: 20200529, end: 20200529

REACTIONS (5)
  - Haemorrhage subcutaneous [Recovering/Resolving]
  - Discomfort [Recovering/Resolving]
  - Rash [Recovering/Resolving]
  - Pruritus [Recovered/Resolved]
  - Bone marrow failure [Recovering/Resolving]

NARRATIVE: CASE EVENT DATE: 20200601
